FAERS Safety Report 21097457 (Version 1)
Quarter: 2022Q3

REPORT INFORMATION
  Report Type: Spontaneous
  Country: US (occurrence: US)
  Receive Date: 20220719
  Receipt Date: 20220719
  Transmission Date: 20221027
  Serious: No
  Sender: FDA-Public Use
  Company Number: US-BRISTOL-MYERS SQUIBB COMPANY-BMS-2022-040148

PATIENT
  Age: 65 Year
  Sex: Female
  Weight: 81.65 kg

DRUGS (10)
  1. ELIQUIS [Suspect]
     Active Substance: APIXABAN
     Indication: Deep vein thrombosis
     Dosage: UNAVAILABLE
     Route: 048
     Dates: start: 202111
  2. ELIQUIS [Suspect]
     Active Substance: APIXABAN
  3. ELIQUIS [Suspect]
     Active Substance: APIXABAN
     Route: 048
  4. ASPIRIN [Concomitant]
     Active Substance: ASPIRIN
     Indication: Product used for unknown indication
     Route: 065
  5. JANUVIA [Concomitant]
     Active Substance: SITAGLIPTIN PHOSPHATE
     Indication: Product used for unknown indication
  6. LANTUS [Concomitant]
     Active Substance: INSULIN GLARGINE
     Indication: Product used for unknown indication
  7. LEVOTHYROXINE [Concomitant]
     Active Substance: LEVOTHYROXINE
     Indication: Product used for unknown indication
  8. COCONUT OIL [Concomitant]
     Active Substance: COCONUT OIL
     Indication: Product used for unknown indication
  9. CINNAMON [Concomitant]
     Active Substance: CINNAMON
     Indication: Product used for unknown indication
  10. CALCIUM [Concomitant]
     Active Substance: CALCIUM
     Indication: Product used for unknown indication

REACTIONS (4)
  - Arthralgia [Unknown]
  - Skin discolouration [Not Recovered/Not Resolved]
  - Treatment noncompliance [Unknown]
  - Rotator cuff syndrome [Unknown]

NARRATIVE: CASE EVENT DATE: 20220101
